FAERS Safety Report 12950733 (Version 1)
Quarter: 2016Q4

REPORT INFORMATION
  Report Type: Spontaneous
  Country: US (occurrence: US)
  Receive Date: 20161116
  Receipt Date: 20161116
  Transmission Date: 20170207
  Serious: No
  Sender: FDA-Public Use
  Company Number: US-ELI_LILLY_AND_COMPANY-US201611004995

PATIENT
  Age: 18 Month
  Sex: Male

DRUGS (7)
  1. CALCIUM [Concomitant]
     Active Substance: CALCIUM
     Indication: PRODUCT USED FOR UNKNOWN INDICATION
  2. VITAMIN D [Concomitant]
     Active Substance: CHOLECALCIFEROL
     Indication: PRODUCT USED FOR UNKNOWN INDICATION
  3. SENNA                              /00142201/ [Concomitant]
     Active Substance: SENNA LEAF
     Indication: CONSTIPATION
  4. BACTRIM [Concomitant]
     Active Substance: SULFAMETHOXAZOLE\TRIMETHOPRIM
     Indication: PROPHYLAXIS
  5. TERIPARATIDE [Suspect]
     Active Substance: TERIPARATIDE
     Indication: HYPOPARATHYROIDISM
     Dosage: 2.5 UG, BID
     Route: 065
     Dates: start: 201605
  6. TERIPARATIDE [Suspect]
     Active Substance: TERIPARATIDE
     Dosage: 5 UG, BID
     Route: 065
  7. TERIPARATIDE [Suspect]
     Active Substance: TERIPARATIDE
     Dosage: 10 UG, BID
     Route: 065

REACTIONS (4)
  - Wrong technique in product usage process [Unknown]
  - Drug prescribing error [Unknown]
  - Off label use [Unknown]
  - Incorrect dose administered [Unknown]
